FAERS Safety Report 7096147-4 (Version None)
Quarter: 2010Q4

REPORT INFORMATION
  Report Type: 
  Country: None (occurrence: None)
  Receive Date: 20101111
  Receipt Date: 20101101
  Transmission Date: 20110411
  Serious: Yes (Death, Hospitalization)
  Sender: FDA-Public Use
  Company Number: US-BAXTER-2010BH026978

PATIENT
  Age: 73 Year
  Sex: Female

DRUGS (9)
  1. DIANEAL [Suspect]
     Indication: RENAL FAILURE CHRONIC
     Route: 033
     Dates: end: 20100901
  2. DIANEAL [Suspect]
     Indication: PERITONEAL DIALYSIS
     Route: 033
     Dates: end: 20100901
  3. DIANEAL [Suspect]
     Route: 033
     Dates: end: 20100901
  4. DIANEAL [Suspect]
     Indication: RENAL FAILURE CHRONIC
     Route: 033
     Dates: end: 20100901
  5. DIANEAL [Suspect]
     Indication: PERITONEAL DIALYSIS
     Route: 033
     Dates: end: 20100901
  6. DIANEAL [Suspect]
     Route: 033
     Dates: end: 20100901
  7. DIANEAL [Suspect]
     Route: 033
     Dates: start: 20100101, end: 20100901
  8. DIANEAL [Suspect]
     Route: 033
     Dates: start: 20100101, end: 20100901
  9. DIANEAL [Suspect]
     Route: 033
     Dates: start: 20100101, end: 20100901

REACTIONS (3)
  - HYPOTENSION [None]
  - RENAL FAILURE ACUTE [None]
  - WHITE BLOOD CELL COUNT INCREASED [None]
